FAERS Safety Report 7383545-4 (Version None)
Quarter: 2011Q1

REPORT INFORMATION
  Report Type: 
  Country: None (occurrence: None)
  Receive Date: 20110330
  Receipt Date: 20110321
  Transmission Date: 20110831
  Serious: Yes (Other)
  Sender: FDA-Public Use
  Company Number: US-BAYER-2011-025733

PATIENT
  Sex: Female

DRUGS (6)
  1. OPTIMARK [Suspect]
     Indication: NUCLEAR MAGNETIC RESONANCE IMAGING
  2. OMNISCAN [Suspect]
     Indication: NUCLEAR MAGNETIC RESONANCE IMAGING
  3. MAGNEVIST [Suspect]
     Indication: NUCLEAR MAGNETIC RESONANCE IMAGING
  4. MAGNEVIST [Suspect]
     Indication: DIAGNOSTIC PROCEDURE
  5. OMNISCAN [Suspect]
     Indication: DIAGNOSTIC PROCEDURE
  6. OPTIMARK [Suspect]
     Indication: DIAGNOSTIC PROCEDURE

REACTIONS (2)
  - NEPHROGENIC SYSTEMIC FIBROSIS [None]
  - PAIN [None]
